FAERS Safety Report 6121126-0 (Version None)
Quarter: 2009Q1

REPORT INFORMATION
  Report Type: 
  Country: None (occurrence: None)
  Receive Date: 20090317
  Receipt Date: 20090306
  Transmission Date: 20090719
  Serious: Yes (Hospitalization)
  Sender: FDA-Public Use
  Company Number: A0773195A

PATIENT
  Age: 83 Year
  Sex: Female
  Weight: 65.9 kg

DRUGS (1)
  1. AVANDIA [Suspect]
     Indication: DIABETES MELLITUS
     Route: 048
     Dates: start: 20060101, end: 20070301

REACTIONS (1)
  - CEREBROVASCULAR ACCIDENT [None]
